FAERS Safety Report 8054679-6 (Version None)
Quarter: 2012Q1

REPORT INFORMATION
  Report Type: 
  Country: None (occurrence: None)
  Receive Date: 20120119
  Receipt Date: 20120112
  Transmission Date: 20120608
  Serious: No
  Sender: FDA-Public Use
  Company Number: US-PFIZER INC-2012002744

PATIENT
  Sex: Female
  Weight: 64.853 kg

DRUGS (7)
  1. LYRICA [Suspect]
     Indication: FIBROMYALGIA
     Dosage: 75 MG, 1X/DAY
     Route: 048
     Dates: start: 20080101
  2. LYRICA [Suspect]
     Dosage: 300 MG, 1X/DAY
     Route: 048
     Dates: end: 20090101
  3. PHENIRAMINE [Concomitant]
     Dosage: UNK
  4. LEVATOL [Concomitant]
     Dosage: UNK
  5. LYRICA [Suspect]
     Dosage: 300 MG, 1X/DAY
     Route: 048
     Dates: start: 20110101
  6. LYRICA [Suspect]
     Dosage: 300 MG, 2X/DAY
     Route: 048
     Dates: start: 20090101, end: 20110101
  7. PERCOCET [Concomitant]
     Indication: BREAKTHROUGH PAIN
     Dosage: UNK

REACTIONS (2)
  - FEELING ABNORMAL [None]
  - PAIN [None]
